FAERS Safety Report 7730073-X (Version None)
Quarter: 2011Q3

REPORT INFORMATION
  Report Type: 
  Country: None (occurrence: None)
  Receive Date: 20110906
  Receipt Date: 20110826
  Transmission Date: 20111222
  Serious: Yes (Hospitalization)
  Sender: FDA-Public Use
  Company Number: PHHY2011SE23816

PATIENT
  Sex: Female

DRUGS (2)
  1. CLOZAPINE [Suspect]
     Dates: start: 20110104, end: 20110120
  2. DIAZEPAM [Concomitant]

REACTIONS (11)
  - SINUS TACHYCARDIA [None]
  - BACTERIAL INFECTION [None]
  - BRAIN NATRIURETIC PEPTIDE INCREASED [None]
  - CARDIOMYOPATHY [None]
  - HEART RATE INCREASED [None]
  - PYRUVATE KINASE INCREASED [None]
  - PULSE ABNORMAL [None]
  - BLOOD PRESSURE SYSTOLIC DECREASED [None]
  - MYOCARDITIS [None]
  - C-REACTIVE PROTEIN INCREASED [None]
  - X-RAY ABNORMAL [None]
